FAERS Safety Report 9001422 (Version 1)
Quarter: 2013Q1

REPORT INFORMATION
  Report Type: Spontaneous
  Country: AU (occurrence: AU)
  Receive Date: 20130107
  Receipt Date: 20130107
  Transmission Date: 20140127
  Serious: Yes (Death)
  Sender: FDA-Public Use
  Company Number: AU-ASTRAZENECA-2013SE00624

PATIENT
  Age: 65 Year
  Sex: Female

DRUGS (8)
  1. NEXIUM [Suspect]
     Route: 048
  2. CRESTOR [Suspect]
     Route: 048
  3. DIABEX XR [Suspect]
  4. OLMETEC [Suspect]
  5. SOTALOL HYDROCHLORIDE [Suspect]
  6. XARELTO [Suspect]
     Indication: ATRIAL FIBRILLATION
     Route: 048
     Dates: start: 20121012
  7. XARELTO [Suspect]
     Indication: CEREBROVASCULAR ACCIDENT PROPHYLAXIS
     Route: 048
     Dates: start: 20121012
  8. FLECAINIDE [Concomitant]

REACTIONS (3)
  - Myocardial infarction [Fatal]
  - Chest pain [Fatal]
  - Dyspnoea [Fatal]
